FAERS Safety Report 9808525 (Version 1)
Quarter: 2014Q1

REPORT INFORMATION
  Report Type: Spontaneous
  Country: US (occurrence: US)
  Receive Date: 20140110
  Receipt Date: 20140110
  Transmission Date: 20141002
  Serious: Yes (Hospitalization)
  Sender: FDA-Public Use
  Company Number: US-JNJFOC-20140102029

PATIENT
  Sex: Male
  Weight: 74.84 kg

DRUGS (1)
  1. DOXIL [Suspect]
     Indication: KAPOSI^S SARCOMA
     Route: 042
     Dates: start: 201312

REACTIONS (3)
  - Lymphoma [Not Recovered/Not Resolved]
  - Activities of daily living impaired [Not Recovered/Not Resolved]
  - Inappropriate schedule of drug administration [Unknown]
